FAERS Safety Report 8101864-0 (Version None)
Quarter: 2012Q1

REPORT INFORMATION
  Report Type: 
  Country: None (occurrence: None)
  Receive Date: 20120131
  Receipt Date: 20120127
  Transmission Date: 20120608
  Serious: Yes (Death, Hospitalization, Other)
  Sender: FDA-Public Use
  Company Number: PHHY2012MX007630

PATIENT
  Age: 80 Year
  Sex: Female

DRUGS (4)
  1. SPIRIVA [Concomitant]
  2. SOLATENE [Concomitant]
  3. CERTAGEN [Concomitant]
  4. FORADIL [Suspect]
     Indication: ASTHMA
     Dosage: 1 DF, QD
     Dates: start: 20111201, end: 20120118

REACTIONS (3)
  - RESPIRATORY FAILURE [None]
  - PULMONARY OEDEMA [None]
  - DYSPNOEA [None]
